FAERS Safety Report 18203415 (Version 1)
Quarter: 2020Q3

REPORT INFORMATION
  Report Type: Spontaneous
  Country: US (occurrence: US)
  Receive Date: 20200827
  Receipt Date: 20200827
  Transmission Date: 20201103
  Serious: Yes (Other)
  Sender: FDA-Public Use
  Company Number: US-SA-2020SA223863

PATIENT

DRUGS (1)
  1. LANTUS SOLOSTAR [Suspect]
     Active Substance: INSULIN GLARGINE
     Dosage: 42 IU, QD
     Route: 065

REACTIONS (3)
  - Dementia [Unknown]
  - Hypoacusis [Unknown]
  - Wrong technique in device usage process [Unknown]
